FAERS Safety Report 21149290 (Version 4)
Quarter: 2024Q4

REPORT INFORMATION
  Report Type: Spontaneous
  Country: US (occurrence: US)
  Receive Date: 20220729
  Receipt Date: 20241001
  Transmission Date: 20250115
  Serious: Yes (Other)
  Sender: TAKEDA
  Company Number: US-TAKEDA-2022TUS051375

PATIENT
  Age: 36 Year
  Sex: Female

DRUGS (6)
  1. ENTYVIO [Suspect]
     Active Substance: VEDOLIZUMAB
     Indication: Crohn^s disease
     Dosage: UNK
     Route: 042
     Dates: start: 20210801
  2. ENTYVIO [Suspect]
     Active Substance: VEDOLIZUMAB
     Dosage: UNK UNK, Q4WEEKS
     Route: 042
     Dates: end: 202406
  3. ENTYVIO [Suspect]
     Active Substance: VEDOLIZUMAB
     Indication: Crohn^s disease
     Dosage: UNK
     Route: 058
     Dates: start: 202406
  4. ENTYVIO [Suspect]
     Active Substance: VEDOLIZUMAB
     Indication: Crohn^s disease
     Dosage: UNK
     Route: 058
     Dates: start: 202406
  5. ENTYVIO [Suspect]
     Active Substance: VEDOLIZUMAB
     Indication: Crohn^s disease
     Dosage: UNK
     Route: 058
     Dates: start: 202406
  6. ENTYVIO [Suspect]
     Active Substance: VEDOLIZUMAB
     Indication: Crohn^s disease
     Dosage: UNK
     Route: 058
     Dates: start: 202406

REACTIONS (12)
  - Cholelithiasis [Unknown]
  - Hepatic enzyme increased [Unknown]
  - Illness [Unknown]
  - Swelling [Unknown]
  - Weight increased [Unknown]
  - Gastrointestinal inflammation [Recovering/Resolving]
  - Off label use [Unknown]
  - Product dose omission issue [Unknown]
  - Abdominal pain upper [Unknown]
  - Paraesthesia [Unknown]
  - Pain in extremity [Recovering/Resolving]
  - Fatigue [Recovering/Resolving]

NARRATIVE: CASE EVENT DATE: 20240301
